FAERS Safety Report 8353556-0 (Version None)
Quarter: 2012Q2

REPORT INFORMATION
  Report Type: 
  Country: None (occurrence: None)
  Receive Date: 20120511
  Receipt Date: 20110606
  Transmission Date: 20120825
  Serious: No
  Sender: FDA-Public Use
  Company Number: US-GLAXOSMITHKLINE-A0930404A

PATIENT
  Age: 59 Year
  Sex: Female

DRUGS (5)
  1. FEMARA [Concomitant]
  2. IMODIUM [Concomitant]
  3. TRIAMTERENE AND HYDROCHLOROTHIAZIDE [Concomitant]
  4. SIMVASTATIN [Concomitant]
  5. TYKERB [Suspect]
     Indication: BREAST CANCER
     Dosage: 1500MG PER DAY
     Route: 048
     Dates: start: 20100926

REACTIONS (3)
  - ABDOMINAL PAIN UPPER [None]
  - HAIR TEXTURE ABNORMAL [None]
  - DIARRHOEA [None]
